FAERS Safety Report 8960546 (Version 2)
Quarter: 2013Q2

REPORT INFORMATION
  Report Type: Spontaneous
  Country: AT (occurrence: None)
  Receive Date: 20121203
  Receipt Date: 20121210
  Transmission Date: 20140414
  Serious: Yes (Hospitalization)
  Sender: FDA-Public Use
  Company Number: 201211052

PATIENT
  Sex: Male

DRUGS (1)
  1. XIAPEX [Suspect]
     Dosage: INTRALESIONAL
     Dates: start: 20121015, end: 20121015

REACTIONS (1)
  - Urticaria [None]
